FAERS Safety Report 18418797 (Version 1)
Quarter: 2020Q4

REPORT INFORMATION
  Report Type: Spontaneous
  Country: US (occurrence: US)
  Receive Date: 20201022
  Receipt Date: 20201022
  Transmission Date: 20210114
  Serious: No
  Sender: FDA-Public Use
  Company Number: None

PATIENT
  Age: 60 Year
  Sex: Female
  Weight: 56.2 kg

DRUGS (16)
  1. REMDESIVIR. [Suspect]
     Active Substance: REMDESIVIR
     Indication: COVID-19 PNEUMONIA
     Dosage: ?          OTHER FREQUENCY:ONCE;?
     Route: 042
     Dates: start: 20201020, end: 20201020
  2. CALCITRIOL 0.25 MCG [Concomitant]
     Active Substance: CALCITRIOL
     Dates: start: 20201019, end: 20201021
  3. HEPARIN IN D5W 9ML/HR [Concomitant]
     Dates: start: 20201018, end: 20201018
  4. ASPIRIN EC 81 MG [Concomitant]
     Dates: start: 20201019, end: 20201021
  5. LOSARTAN 100 MG [Concomitant]
     Active Substance: LOSARTAN
     Dates: start: 20201019, end: 20201021
  6. ONDANSETRON 4 MG [Concomitant]
     Active Substance: ONDANSETRON
     Dates: start: 20201018, end: 20201018
  7. MELATONIN 3 MG [Concomitant]
     Dates: start: 20201019, end: 20201019
  8. LOVENOX 60 MG/0.6 ML [Concomitant]
     Dates: start: 20201021, end: 20201021
  9. HEPARIN 60 MG BOLUS [Concomitant]
     Dates: start: 20201018, end: 20201018
  10. HUMALOG 1-6 UNITS [Concomitant]
     Dates: start: 20201019, end: 20201021
  11. ROCEPHIN 2000 MG [Concomitant]
     Dates: start: 20201018, end: 20201018
  12. ATORVASTATIN 40 MG [Concomitant]
     Active Substance: ATORVASTATIN
     Dates: start: 20201019, end: 20201021
  13. DEXAMETHSONE 6 MG [Concomitant]
     Dates: start: 20201018, end: 20201021
  14. METOPROLOL SUCCINATE 100 MG [Concomitant]
     Active Substance: METOPROLOL SUCCINATE
     Dates: start: 20201018, end: 20201021
  15. HUMALOG 1-3 [Concomitant]
     Dates: start: 20201020, end: 20201020
  16. HEPARIN IN D5W 2.8-25.3ML/HR [Concomitant]
     Dates: start: 20201019, end: 20201021

REACTIONS (1)
  - Refusal of treatment by patient [None]

NARRATIVE: CASE EVENT DATE: 20201020
